FAERS Safety Report 12747117 (Version 3)
Quarter: 2016Q4

REPORT INFORMATION
  Report Type: Spontaneous
  Country: US (occurrence: US)
  Receive Date: 20160915
  Receipt Date: 20161020
  Transmission Date: 20170207
  Serious: Yes (Hospitalization, Other)
  Sender: FDA-Public Use
  Company Number: US-ALEXION PHARMACEUTICALS INC.-A201606755

PATIENT
  Sex: Female
  Weight: 63.4 kg

DRUGS (14)
  1. SOLIRIS [Interacting]
     Active Substance: ECULIZUMAB
     Dosage: ON THE DAY OF THE PROCEDURE
     Route: 042
  2. SOLIRIS [Interacting]
     Active Substance: ECULIZUMAB
     Dosage: BEFORE THE TRANSPLANT PROCEDURE
     Route: 042
  3. SOLIRIS [Interacting]
     Active Substance: ECULIZUMAB
     Dosage: UNK
     Route: 042
     Dates: start: 20160902, end: 20160903
  4. SOLIRIS [Interacting]
     Active Substance: ECULIZUMAB
     Dosage: 900 MG, QW
     Route: 042
  5. SOLIRIS [Interacting]
     Active Substance: ECULIZUMAB
     Dosage: TWO DAYS AFTER PROCEDURE
     Route: 042
  6. PREDNISONE. [Concomitant]
     Active Substance: PREDNISONE
     Indication: PRODUCT USED FOR UNKNOWN INDICATION
     Route: 065
  7. PROGRAF [Interacting]
     Active Substance: TACROLIMUS\TACROLIMUS ANHYDROUS
     Dosage: 6 MG, QD
     Route: 065
  8. PROGRAF [Interacting]
     Active Substance: TACROLIMUS\TACROLIMUS ANHYDROUS
     Dosage: 8 MG, TID
     Route: 065
     Dates: start: 20161011
  9. SOLIRIS [Suspect]
     Active Substance: ECULIZUMAB
     Indication: HAEMOLYTIC URAEMIC SYNDROME
     Dosage: 600 MG, Q2W
     Route: 042
     Dates: start: 20140513, end: 20141105
  10. SOLIRIS [Interacting]
     Active Substance: ECULIZUMAB
     Dosage: 1200 MG, UNK
     Dates: start: 20161007
  11. SOLIRIS [Interacting]
     Active Substance: ECULIZUMAB
     Dosage: THE DAY AFTER TRANSPLANT PROCEDURE
     Route: 042
  12. PROGRAF [Interacting]
     Active Substance: TACROLIMUS\TACROLIMUS ANHYDROUS
     Indication: PROPHYLAXIS AGAINST TRANSPLANT REJECTION
     Dosage: UNK
     Route: 065
  13. PROGRAF [Interacting]
     Active Substance: TACROLIMUS\TACROLIMUS ANHYDROUS
     Dosage: 8 MG, BID
     Route: 065
     Dates: end: 20161011
  14. SOLIRIS [Interacting]
     Active Substance: ECULIZUMAB
     Dosage: 900 MG, QW
     Route: 042

REACTIONS (5)
  - Blood creatinine increased [Not Recovered/Not Resolved]
  - Inappropriate schedule of drug administration [Not Recovered/Not Resolved]
  - Off label use [Not Recovered/Not Resolved]
  - Drug interaction [Unknown]
  - Renal impairment [Not Recovered/Not Resolved]
